FAERS Safety Report 7674723-5 (Version None)
Quarter: 2011Q3

REPORT INFORMATION
  Report Type: 
  Country: None (occurrence: None)
  Receive Date: 20110810
  Receipt Date: 20110801
  Transmission Date: 20111222
  Serious: Yes (Hospitalization)
  Sender: FDA-Public Use
  Company Number: US-GLAXOSMITHKLINE-A0904106A

PATIENT
  Age: 56 Year
  Sex: Male
  Weight: 98.2 kg

DRUGS (3)
  1. LAMICTAL [Suspect]
     Indication: MIGRAINE
     Dosage: 50MG PER DAY
     Route: 048
     Dates: start: 20100310, end: 20100405
  2. LORTAB [Concomitant]
  3. PRILOSEC [Concomitant]

REACTIONS (19)
  - DISABILITY [None]
  - MOVEMENT DISORDER [None]
  - ABNORMAL BEHAVIOUR [None]
  - TIC [None]
  - TREMOR [None]
  - DYSPHONIA [None]
  - PERFORMANCE STATUS DECREASED [None]
  - GAIT DISTURBANCE [None]
  - MUSCULAR WEAKNESS [None]
  - STRESS [None]
  - VERTIGO [None]
  - DYSKINESIA [None]
  - ANTISOCIAL BEHAVIOUR [None]
  - TOURETTE'S DISORDER [None]
  - FATIGUE [None]
  - DIZZINESS [None]
  - OFF LABEL USE [None]
  - EMOTIONAL DISORDER [None]
  - BURNOUT SYNDROME [None]
